FAERS Safety Report 7971085-0 (Version None)
Quarter: 2011Q4

REPORT INFORMATION
  Report Type: 
  Country: None (occurrence: None)
  Receive Date: 20111212
  Receipt Date: 20111212
  Transmission Date: 20120403
  Serious: No
  Sender: FDA-Public Use
  Company Number: None

PATIENT
  Age: 43 Year
  Sex: Female
  Weight: 22.679 kg

DRUGS (1)
  1. DOSTINEX [Suspect]
     Indication: IN VITRO FERTILISATION
     Dosage: 1 TABLET
     Dates: start: 20100301, end: 20111125

REACTIONS (12)
  - DEPRESSION [None]
  - FATIGUE [None]
  - PSYCHOTIC BEHAVIOUR [None]
  - MYALGIA [None]
  - ALOPECIA [None]
  - ANXIETY [None]
  - SOMNOLENCE [None]
  - MATERNAL DRUGS AFFECTING FOETUS [None]
  - ANGER [None]
  - VISION BLURRED [None]
  - DISTURBANCE IN ATTENTION [None]
  - PERSONALITY CHANGE [None]
